FAERS Safety Report 23727199 (Version 2)
Quarter: 2024Q2

REPORT INFORMATION
  Report Type: Spontaneous
  Country: US (occurrence: US)
  Receive Date: 20240410
  Receipt Date: 20240502
  Transmission Date: 20240716
  Serious: Yes (Other)
  Sender: FDA-Public Use
  Company Number: US-OTSUKA-2024_004006

PATIENT
  Age: 86 Year
  Sex: Female

DRUGS (27)
  1. REXULTI [Suspect]
     Active Substance: BREXPIPRAZOLE
     Indication: Dementia
     Dosage: 2 MG, QD (ONE TABLET DAILY IN MORNING)
     Route: 048
     Dates: start: 20240109
  2. REXULTI [Suspect]
     Active Substance: BREXPIPRAZOLE
     Indication: Dementia Alzheimer^s type
     Dosage: 1 MG
     Route: 065
     Dates: start: 20240102
  3. REXULTI [Suspect]
     Active Substance: BREXPIPRAZOLE
     Dosage: 0.5 MG, QD FOR 7 DAYS
     Route: 065
     Dates: start: 20231226
  4. SEROQUEL [Suspect]
     Active Substance: QUETIAPINE FUMARATE
     Indication: Sleep disorder
     Dosage: 100 MG, QD (1 TABLET DAILY IN EVENING AT 7 PM)
     Route: 048
  5. SEROQUEL [Suspect]
     Active Substance: QUETIAPINE FUMARATE
     Dosage: 125 MG, BID
     Route: 065
  6. SEROQUEL [Suspect]
     Active Substance: QUETIAPINE FUMARATE
     Dosage: TID 375 MG (75,150 AND 150)
     Route: 065
  7. SEROQUEL [Suspect]
     Active Substance: QUETIAPINE FUMARATE
     Dosage: TID 225 MG (75,50 AND 100)
     Route: 065
  8. SEROQUEL [Suspect]
     Active Substance: QUETIAPINE FUMARATE
     Dosage: 50 MG, QD (BED TIME FOR WEEK)
     Route: 065
     Dates: start: 20240229
  9. SEROQUEL [Suspect]
     Active Substance: QUETIAPINE FUMARATE
     Dosage: 150 MG (50 MG AND 100 MG)
     Route: 065
  10. SEROQUEL [Suspect]
     Active Substance: QUETIAPINE FUMARATE
     Dosage: UNK UNK, BID 125 MG  (100 MG BED TIME, 25 MG NOON)
     Route: 065
     Dates: start: 20240221
  11. SEROQUEL [Suspect]
     Active Substance: QUETIAPINE FUMARATE
     Dosage: 100 MG, QD (1 TABLET DAILY AT BED TIME)
     Route: 048
     Dates: start: 20240402
  12. SEROQUEL [Suspect]
     Active Substance: QUETIAPINE FUMARATE
     Dosage: 300 MG
     Route: 065
  13. SEROQUEL [Suspect]
     Active Substance: QUETIAPINE FUMARATE
     Dosage: 50 MG, QD (1 TABLET DAILY AT 3 PM)
     Route: 048
  14. SEROQUEL [Suspect]
     Active Substance: QUETIAPINE FUMARATE
     Dosage: 25 MG, QD (NIGHTLY)
     Route: 065
  15. SEROQUEL [Suspect]
     Active Substance: QUETIAPINE FUMARATE
     Dosage: UNK
  16. SERTRALINE [Concomitant]
     Active Substance: SERTRALINE HYDROCHLORIDE
     Indication: Anxiety
     Dosage: 25 MG, QD IN EVENING FOR 5 DAYS
     Route: 065
  17. SERTRALINE [Concomitant]
     Active Substance: SERTRALINE HYDROCHLORIDE
     Dosage: 50 MG, QD
     Route: 065
  18. SERTRALINE [Concomitant]
     Active Substance: SERTRALINE HYDROCHLORIDE
     Dosage: 75 MG, QD
     Route: 065
     Dates: start: 20240221
  19. ATIVAN [Concomitant]
     Active Substance: LORAZEPAM
     Indication: Anxiety
     Dosage: 0.5 MG, AS NECESSARY (TID)
     Route: 065
  20. ATIVAN [Concomitant]
     Active Substance: LORAZEPAM
     Indication: Aggression
     Dosage: 0.5 MG, AS NECESSARY (QID)
     Route: 065
  21. ATIVAN [Concomitant]
     Active Substance: LORAZEPAM
     Indication: Agitation
     Dosage: 0.5 MG, AS NECESSARY TID AT 1 TAB 7 AM, 1 TAB 11 AM AND 2 TAB 4 PM
     Route: 048
  22. ATIVAN [Concomitant]
     Active Substance: LORAZEPAM
     Indication: Delirium
     Dosage: UNK, AS NECESSARY UP TO BID
     Route: 048
  23. RIVASTIGMINE [Concomitant]
     Active Substance: RIVASTIGMINE
     Indication: Dementia Alzheimer^s type
     Dosage: 4.6 MG, QD (24 HOUR PATCH)
     Route: 062
     Dates: start: 20240221
  24. RIVASTIGMINE [Concomitant]
     Active Substance: RIVASTIGMINE
     Dosage: 9.5 MG, QD (24 HOUR PATCH)
     Route: 062
  25. RIVASTIGMINE [Concomitant]
     Active Substance: RIVASTIGMINE
     Dosage: 13.3 MG, QD (24 HOUR PATCH DAILY IN MORNING)
     Route: 062
  26. AMLODIPINE [Concomitant]
     Active Substance: AMLODIPINE BESYLATE
     Indication: Hypertension
     Dosage: UNK
     Route: 065
  27. QUETIAPINE [Concomitant]
     Active Substance: QUETIAPINE
     Indication: Neuropsychological symptoms
     Dosage: 100 MG, QD
     Route: 048

REACTIONS (18)
  - Delirium [Recovering/Resolving]
  - Hallucination [Recovered/Resolved]
  - Crying [Recovering/Resolving]
  - Tearfulness [Recovering/Resolving]
  - Aggression [Recovered/Resolved]
  - Communication disorder [Unknown]
  - Depression [Unknown]
  - Skin laceration [Unknown]
  - Physical assault [Unknown]
  - Anger [Recovered/Resolved]
  - Agitation [Recovered/Resolved]
  - Frequent bowel movements [Recovering/Resolving]
  - Insomnia [Recovered/Resolved]
  - Constipation [Recovering/Resolving]
  - Restlessness [Unknown]
  - Urinary tract infection [Unknown]
  - Extrapyramidal disorder [Unknown]
  - Weight increased [Unknown]

NARRATIVE: CASE EVENT DATE: 20240318
